FAERS Safety Report 11532602 (Version 1)
Quarter: 2015Q3

REPORT INFORMATION
  Report Type: Report from Study
  Country: US (occurrence: US)
  Receive Date: 20150921
  Receipt Date: 20150921
  Transmission Date: 20151125
  Serious: Yes (Death)
  Sender: FDA-Public Use
  Company Number: PHEH2015US018283

PATIENT
  Age: 54 Year
  Sex: Female

DRUGS (1)
  1. FARYDAK [Suspect]
     Active Substance: PANOBINOSTAT
     Indication: PLASMA CELL MYELOMA
     Dosage: 10 MG, EVERY OTHER DAY FOR 3 DOSES PER WEEK IN WEEKS 1 AND 2 OF EACH 21 DAY CYCLE
     Route: 048

REACTIONS (1)
  - Death [Fatal]

NARRATIVE: CASE EVENT DATE: 20150911
